FAERS Safety Report 12053209 (Version 1)
Quarter: 2016Q1

REPORT INFORMATION
  Report Type: Report from Study
  Country: US (occurrence: US)
  Receive Date: 20160209
  Receipt Date: 20160209
  Transmission Date: 20160526
  Serious: Yes (Hospitalization, Other)
  Sender: FDA-Public Use
  Company Number: US-ABBVIE-15P-163-1458205-00

PATIENT
  Age: 53 Year
  Sex: Male

DRUGS (3)
  1. HUMIRA [Suspect]
     Active Substance: ADALIMUMAB
     Route: 065
     Dates: end: 20150907
  2. HUMIRA [Suspect]
     Active Substance: ADALIMUMAB
     Dosage: DAY 15
     Route: 065
     Dates: start: 20150828, end: 20150828
  3. HUMIRA [Suspect]
     Active Substance: ADALIMUMAB
     Indication: COLITIS ULCERATIVE
     Dosage: STARTING DOSE, DAY 1
     Route: 065
     Dates: start: 20150814, end: 20150814

REACTIONS (3)
  - Diarrhoea [Not Recovered/Not Resolved]
  - Intestinal resection [Recovered/Resolved]
  - Intestinal operation [Unknown]

NARRATIVE: CASE EVENT DATE: 20150828
